FAERS Safety Report 21657054 (Version 2)
Quarter: 2023Q1

REPORT INFORMATION
  Report Type: Spontaneous
  Country: FR (occurrence: FR)
  Receive Date: 20221129
  Receipt Date: 20230117
  Transmission Date: 20230418
  Serious: Yes (Disabling)
  Sender: FDA-Public Use
  Company Number: FR-GSKCCFEMEA-Case-01609104_AE-64231

PATIENT

DRUGS (1)
  1. FLUTICASONE FUROATE\VILANTEROL TRIFENATATE [Suspect]
     Active Substance: FLUTICASONE FUROATE\VILANTEROL TRIFENATATE
     Indication: Cough
     Dosage: 2 PUFF(S), QD (92 UG)
     Route: 048
     Dates: start: 20220810

REACTIONS (13)
  - Stomatitis [Recovered/Resolved]
  - Oral discomfort [Recovering/Resolving]
  - Dry mouth [Recovering/Resolving]
  - Aptyalism [Recovering/Resolving]
  - Speech disorder [Recovering/Resolving]
  - Pain [Recovering/Resolving]
  - Tongue disorder [Recovering/Resolving]
  - Dysgeusia [Recovering/Resolving]
  - Feeding disorder [Not Recovered/Not Resolved]
  - Discomfort [Unknown]
  - Hypersensitivity [Unknown]
  - Product use in unapproved indication [Unknown]
  - Product prescribing error [Unknown]

NARRATIVE: CASE EVENT DATE: 20220810
